FAERS Safety Report 7198375-6 (Version None)
Quarter: 2010Q4

REPORT INFORMATION
  Report Type: 
  Country: None (occurrence: None)
  Receive Date: 20101227
  Receipt Date: 20101222
  Transmission Date: 20110411
  Serious: Yes (Hospitalization)
  Sender: FDA-Public Use
  Company Number: FR-BRISTOL-MYERS SQUIBB COMPANY-15027097

PATIENT
  Age: 80 Year
  Sex: Female

DRUGS (10)
  1. ORENCIA [Suspect]
     Indication: RHEUMATOID ARTHRITIS
     Dosage: SECOND INF ON 09-MAR-2010
     Route: 042
     Dates: start: 20100223
  2. METHOTREXATE [Concomitant]
     Indication: POLYARTHRITIS
     Route: 048
     Dates: start: 20040101
  3. CORTANCYL [Concomitant]
     Indication: POLYARTHRITIS
     Route: 048
     Dates: start: 20040101
  4. SKENAN [Concomitant]
     Indication: POLYARTHRITIS
     Route: 048
     Dates: start: 20050101
  5. ACTONEL [Concomitant]
     Indication: OSTEOPOROSIS
     Route: 048
     Dates: start: 20040101
  6. MOPRAL [Concomitant]
     Indication: HIATUS HERNIA
     Route: 048
     Dates: start: 20040101
  7. SPECIAFOLDINE [Concomitant]
     Route: 048
  8. IMOVANE [Concomitant]
     Route: 048
  9. OROCAL D3 [Concomitant]
     Dosage: 2 DOSAGEFORM = 2 TABS
     Route: 048
  10. ACETAMINOPHEN [Concomitant]
     Route: 048

REACTIONS (3)
  - BRONCHITIS [None]
  - PULMONARY EMBOLISM [None]
  - VENOUS THROMBOSIS LIMB [None]
